FAERS Safety Report 5645274-4 (Version None)
Quarter: 2008Q1

REPORT INFORMATION
  Report Type: 
  Country: None (occurrence: None)
  Receive Date: 20080229
  Receipt Date: 20080221
  Transmission Date: 20080703
  Serious: No
  Sender: FDA-Public Use
  Company Number: GB-BAXTER-2008BH001711

PATIENT
  Age: 4 Year
  Sex: Male

DRUGS (1)
  1. DEXTROSE 5% AND SODIUM CHLORIDE 0.45% IN PLASTIC CONTAINER [Suspect]
     Indication: DEHYDRATION
     Dosage: DOSE UNIT:UNKNOWN
     Route: 042

REACTIONS (2)
  - CENTRAL PONTINE MYELINOLYSIS [None]
  - HYPONATRAEMIA [None]
